FAERS Safety Report 6736621-0 (Version None)
Quarter: 2010Q2

REPORT INFORMATION
  Report Type: 
  Country: None (occurrence: None)
  Receive Date: 20100520
  Receipt Date: 20100520
  Transmission Date: 20101027
  Serious: Yes (Hospitalization)
  Sender: FDA-Public Use
  Company Number: None

PATIENT
  Sex: Female
  Weight: 118.6 kg

DRUGS (4)
  1. MERCAPTOPURINE [Suspect]
     Dosage: 4420 MG
  2. METHOTREXATE [Suspect]
     Dosage: 177 MG
  3. VINCRISTINE SULFATE [Suspect]
     Dosage: .87 MG
  4. DEXAMETHASONE [Suspect]
     Dosage: 65 MG

REACTIONS (5)
  - BLOOD AMYLASE INCREASED [None]
  - CHILLS [None]
  - PYREXIA [None]
  - VOMITING [None]
  - WHITE BLOOD CELL COUNT DECREASED [None]
